FAERS Safety Report 23930326 (Version 1)
Quarter: 2024Q2

REPORT INFORMATION
  Report Type: Report from Study
  Country: AR (occurrence: AR)
  Receive Date: 20240602
  Receipt Date: 20240602
  Transmission Date: 20240715
  Serious: Yes (Hospitalization)
  Sender: FDA-Public Use
  Company Number: AR-JNJFOC-20240578736

PATIENT
  Age: 83 Year
  Sex: Female

DRUGS (1)
  1. SIMPONI [Suspect]
     Active Substance: GOLIMUMAB
     Indication: Rheumatoid arthritis
     Dosage: LAST INFUSION: 27-MAR-2024.
     Route: 041
     Dates: start: 20240218

REACTIONS (3)
  - Clavicle fracture [Unknown]
  - Dengue fever [Unknown]
  - Off label use [Unknown]

NARRATIVE: CASE EVENT DATE: 20240218
